FAERS Safety Report 11529693 (Version 1)
Quarter: 2015Q3

REPORT INFORMATION
  Report Type: Other
  Country: IT (occurrence: IT)
  Receive Date: 20150921
  Receipt Date: 20150921
  Transmission Date: 20151125
  Serious: Yes (Hospitalization)
  Sender: FDA-Public Use
  Company Number: IT-MYLANLABS-2015M1030732

PATIENT

DRUGS (4)
  1. SERTRALINA MYLAN GENERICS 100MG [Suspect]
     Active Substance: SERTRALINE HYDROCHLORIDE
     Indication: DEPRESSION
     Dosage: 200 MG, UNK
     Dates: start: 20150316
  2. LIBRIUM [Suspect]
     Active Substance: CHLORDIAZEPOXIDE HYDROCHLORIDE
     Indication: ALCOHOLISM
     Dosage: 20 MG, UNK
     Dates: start: 20150101
  3. SERTRALINA MYLAN GENERICS 100MG [Suspect]
     Active Substance: SERTRALINE HYDROCHLORIDE
     Dosage: 4.5 G TOTAL
     Route: 048
     Dates: start: 20150317
  4. LIBRIUM [Suspect]
     Active Substance: CHLORDIAZEPOXIDE HYDROCHLORIDE
     Dosage: 450 MG TOTAL
     Route: 048
     Dates: start: 20150317

REACTIONS (5)
  - Intentional overdose [Unknown]
  - Drug abuse [Unknown]
  - Sopor [Recovered/Resolved]
  - Ataxia [Recovered/Resolved]
  - Psychomotor retardation [Recovered/Resolved]

NARRATIVE: CASE EVENT DATE: 20150317
